FAERS Safety Report 7307367-5 (Version None)
Quarter: 2011Q1

REPORT INFORMATION
  Report Type: 
  Country: None (occurrence: None)
  Receive Date: 20110209
  Receipt Date: 20110126
  Transmission Date: 20110831
  Serious: Yes (Disabling)
  Sender: FDA-Public Use
  Company Number: TCI2010A02270

PATIENT
  Age: 78 Year
  Sex: Female

DRUGS (7)
  1. ARICEPT [Concomitant]
  2. LANTUS [Concomitant]
  3. DIOVAN [Concomitant]
  4. CONIEL (BENIDIPINE HYDROCHLORIDE) [Concomitant]
  5. AMARYL [Concomitant]
  6. CRESTOR [Concomitant]
  7. ACTOS [Suspect]
     Indication: TYPE 2 DIABETES MELLITUS
     Dosage: 15 MG (15 MG,1 IN 1 D) PER ORAL
     Route: 048
     Dates: start: 20070201

REACTIONS (1)
  - CEREBRAL INFARCTION [None]
